FAERS Safety Report 6203591-3 (Version None)
Quarter: 2009Q2

REPORT INFORMATION
  Report Type: 
  Country: None (occurrence: None)
  Receive Date: 20090527
  Receipt Date: 20090522
  Transmission Date: 20091009
  Serious: Yes (Hospitalization, Other)
  Sender: FDA-Public Use
  Company Number: TR-BRISTOL-MYERS SQUIBB COMPANY-14313605

PATIENT
  Age: 74 Year
  Sex: Male

DRUGS (3)
  1. COUMADIN [Suspect]
     Indication: MITRAL VALVE REPLACEMENT
     Dosage: RECOMMENCED WITH 2.5MG/DY ON DAY17; 3RD TO 10TH DAY-5MG,1IN1D.17TH-20TH= 2.5MG,28TH ONWRD-5MG.
     Route: 048
  2. MOXIFLOXACIN HCL [Interacting]
     Indication: PNEUMONIA
     Dosage: FROM 8TH TILL 20TH POSTOPERATIVE DAY.
  3. UNFRACTIONATED HEPARIN [Concomitant]
     Indication: MITRAL VALVE REPLACEMENT
     Dosage: FROM 2ND TILL 5TH POSTOPERATIVE DAY.

REACTIONS (4)
  - DRUG INTERACTION [None]
  - ECCHYMOSIS [None]
  - HAEMATURIA [None]
  - INTERNATIONAL NORMALISED RATIO INCREASED [None]
